FAERS Safety Report 6633057-8 (Version None)
Quarter: 2010Q1

REPORT INFORMATION
  Report Type: 
  Country: None (occurrence: None)
  Receive Date: 20100312
  Receipt Date: 20100301
  Transmission Date: 20100710
  Serious: Yes (Hospitalization, Other)
  Sender: FDA-Public Use
  Company Number: PHHY2009JP31455

PATIENT
  Sex: Female
  Weight: 40 kg

DRUGS (2)
  1. CO-DIOVAN [Suspect]
     Indication: HYPOTENSION
     Dosage: 1 DF (80/12.5 MG) DAILY
     Route: 048
     Dates: start: 20090402, end: 20090521
  2. CO-DIOVAN [Suspect]
     Dosage: 1 DF (80/12.5 MG) DAILY
     Dates: start: 20090523, end: 20090601

REACTIONS (11)
  - BLOOD PRESSURE INCREASED [None]
  - CONDITION AGGRAVATED [None]
  - DRUG ERUPTION [None]
  - GASTRIC ULCER HAEMORRHAGE [None]
  - PARKINSON'S DISEASE [None]
  - PNEUMONIA [None]
  - PRURITUS [None]
  - RASH GENERALISED [None]
  - SKIN DISORDER [None]
  - SKIN EXFOLIATION [None]
  - URTICARIA [None]
